FAERS Safety Report 11876488 (Version 1)
Quarter: 2015Q4

REPORT INFORMATION
  Report Type: Spontaneous
  Country: JP (occurrence: JP)
  Receive Date: 20151229
  Receipt Date: 20151229
  Transmission Date: 20160305
  Serious: Yes (Other)
  Sender: FDA-Public Use
  Company Number: JP-HQ SPECIALTY-JP-2015INT000702

PATIENT
  Age: 60 Year
  Sex: Male

DRUGS (3)
  1. ACARBOSE. [Suspect]
     Active Substance: ACARBOSE
     Indication: DIABETES MELLITUS
     Dosage: UNK
  2. CISPLATIN. [Suspect]
     Active Substance: CISPLATIN
     Indication: OESOPHAGEAL CARCINOMA
     Dosage: 2 COURSES OF 80 MG/M2, UNKNOWN FREQUENCY
     Dates: start: 201310
  3. FLUOROURACIL. [Suspect]
     Active Substance: FLUOROURACIL
     Indication: OESOPHAGEAL CARCINOMA
     Dosage: 2 COURSES OF 800 MG/M2, UNKNOWN FREQUENCY, CONTINUOUS ADMINISTRATION
     Dates: start: 201310

REACTIONS (6)
  - Febrile neutropenia [Recovering/Resolving]
  - Pyrexia [Recovering/Resolving]
  - Gallbladder disorder [Recovering/Resolving]
  - Inflammation [Recovering/Resolving]
  - Pneumatosis intestinalis [Recovering/Resolving]
  - Flatulence [Recovering/Resolving]

NARRATIVE: CASE EVENT DATE: 2013
